FAERS Safety Report 9551542 (Version 1)
Quarter: 2013Q3

REPORT INFORMATION
  Report Type: Spontaneous
  Country: US (occurrence: None)
  Receive Date: 20130724
  Receipt Date: 20130724
  Transmission Date: 20140515
  Serious: Yes (Other)
  Sender: FDA-Public Use
  Company Number: PHEH2012US019952

PATIENT
  Age: 11 Year
  Sex: Female

DRUGS (4)
  1. AFINITOR [Suspect]
     Indication: TUBEROUS SCLEROSIS
     Route: 048
     Dates: start: 20120923, end: 20121003
  2. RISPERIDAL (RISPERIDONE) [Concomitant]
  3. RISPERIDAL (RISPERDAL (RISPERIDONE) [Concomitant]
  4. DAYTRANA (METHYLPHENIDATE) [Concomitant]

REACTIONS (4)
  - Cellulitis [None]
  - Sensory disturbance [None]
  - Stomatitis [None]
  - Rash [None]
